FAERS Safety Report 9390069 (Version 1)
Quarter: 2013Q3

REPORT INFORMATION
  Report Type: Spontaneous
  Country: US (occurrence: US)
  Receive Date: 20130708
  Receipt Date: 20130708
  Transmission Date: 20140515
  Serious: No
  Sender: FDA-Public Use
  Company Number: US-AMGEN-USASP2013040091

PATIENT
  Age: 59 Year
  Sex: Female
  Weight: 105 kg

DRUGS (6)
  1. ENBREL [Suspect]
     Indication: ANKYLOSING SPONDYLITIS
     Dosage: 50 MG, QWK
     Route: 058
     Dates: start: 20120620
  2. TRAZODONE [Concomitant]
     Indication: SLEEP DISORDER
     Dosage: 100 MG, QHS
     Route: 048
  3. VENLAFAXINE [Concomitant]
     Indication: AFFECTIVE DISORDER
     Dosage: 225 MG, QD
     Route: 048
  4. CETRIZINE [Concomitant]
     Indication: HYPERSENSITIVITY
     Dosage: 10 MG, QD
     Route: 048
  5. NAPROXEN [Concomitant]
     Indication: PAIN
     Dosage: 220 MG, 4 DAILY
     Route: 048
  6. FLONASE [Concomitant]
     Indication: HYPERSENSITIVITY
     Dosage: 50 MUG, QD
     Route: 045

REACTIONS (3)
  - Cough [Not Recovered/Not Resolved]
  - Pain [Not Recovered/Not Resolved]
  - Nasopharyngitis [Not Recovered/Not Resolved]
